FAERS Safety Report 25261506 (Version 2)
Quarter: 2025Q2

REPORT INFORMATION
  Report Type: Report from Study
  Country: US (occurrence: US)
  Receive Date: 20250501
  Receipt Date: 20250513
  Transmission Date: 20250717
  Serious: Yes (Other)
  Sender: ABBVIE
  Company Number: US-ABBVIE-6248338

PATIENT
  Sex: Female

DRUGS (2)
  1. SKYRIZI [Suspect]
     Active Substance: RISANKIZUMAB-RZAA
     Indication: Crohn^s disease
     Route: 058
  2. SKYRIZI [Suspect]
     Active Substance: RISANKIZUMAB-RZAA
     Route: 058
     Dates: start: 202407

REACTIONS (8)
  - Gastrointestinal carcinoma [Recovered/Resolved]
  - Crohn^s disease [Unknown]
  - Burning sensation [Unknown]
  - Swelling [Unknown]
  - Erythema [Unknown]
  - Pain [Unknown]
  - Unevaluable event [Unknown]
  - Anxiety [Unknown]
